FAERS Safety Report 9719120 (Version 1)
Quarter: 2013Q4

REPORT INFORMATION
  Report Type: Report from Study
  Country: GB (occurrence: GB)
  Receive Date: 20131127
  Receipt Date: 20131127
  Transmission Date: 20140711
  Serious: Yes (Other)
  Sender: FDA-Public Use
  Company Number: PHHY2013GB136378

PATIENT
  Age: 77 Year
  Sex: Male

DRUGS (3)
  1. DICLOFENAC [Suspect]
     Indication: OSTEOARTHRITIS
     Dosage: 50 MG, TID
     Route: 048
     Dates: start: 20110726, end: 20131017
  2. TAMSULOSIN [Concomitant]
     Dosage: 400 UG, UNK
     Dates: start: 20020124
  3. CETIRIZINE [Concomitant]
     Dosage: 10 MG, QD
     Dates: start: 20130326

REACTIONS (3)
  - Barrett^s oesophagus [Recovered/Resolved]
  - Dysphagia [Unknown]
  - Hiatus hernia [Unknown]
